FAERS Safety Report 7919718 (Version 4)
Quarter: 2012Q4

REPORT INFORMATION
  Report Type: 
  Country: US (occurrence: US)
  Receive Date: 20110429
  Receipt Date: 20120912
  Transmission Date: 20130627
  Serious: Yes (Life-Threatening, Hospitalization, Other)
  Sender: FDA-Public Use
  Company Number: US-BAYER-2011-036215

PATIENT
  Age: 48 Year
  Sex: Female
  Weight: 120 kg

DRUGS (15)
  1. YASMIN [Suspect]
     Indication: CONTRACEPTION
     Dosage: UNK
     Dates: start: 20030723, end: 200610
  2. YASMIN [Suspect]
     Indication: MOOD ALTERED
  3. EXCEDRIN MIGRAINE [Concomitant]
     Indication: HEADACHE
     Dosage: UNK UNK, BID
     Dates: start: 1976
  4. EXCEDRIN MIGRAINE [Concomitant]
     Indication: OROPHARYNGEAL PAIN
  5. XANAX [Concomitant]
     Indication: ANXIETY
     Dosage: UNK
     Dates: start: 1997
  6. MOTRIN [Concomitant]
     Dosage: UNK
     Dates: start: 2000
  7. EFFEXOR-XR [Concomitant]
     Indication: DEPRESSION
     Dosage: 150 mg, UNK
     Dates: start: 2001
  8. PROVIGIL [Concomitant]
     Indication: DEPRESSION
     Dosage: UNK
     Dates: start: 2001
  9. FLUCONAZOLE [Concomitant]
     Dosage: 100 mg, UNK
  10. AMBIEN [Concomitant]
     Dosage: 10 mg, UNK
  11. ALPRAZOLAM [Concomitant]
     Indication: ANXIETY
     Dosage: 0.25 mg, UNK
     Dates: start: 200603
  12. ZITHROMAX [Concomitant]
     Dosage: UNK
     Dates: start: 200606
  13. LORTAB [Concomitant]
  14. TRIAZOLAM [Concomitant]
     Dosage: 0.25 mg, UNK
     Route: 048
     Dates: start: 20060612
  15. ASPIRIN [Concomitant]
     Dosage: UNK
     Route: 048
     Dates: start: 20060825

REACTIONS (14)
  - Pulmonary embolism [None]
  - Dyspnoea [None]
  - Deep vein thrombosis [None]
  - Oedema peripheral [None]
  - Mobility decreased [None]
  - Cyanosis [None]
  - Thrombosis [None]
  - Peripheral coldness [None]
  - Pain [None]
  - Cholecystitis [None]
  - Cholelithiasis [None]
  - Emotional distress [None]
  - Anxiety [None]
  - General physical health deterioration [None]
